FAERS Safety Report 5441852-6 (Version None)
Quarter: 2007Q3

REPORT INFORMATION
  Report Type: 
  Country: None (occurrence: None)
  Receive Date: 20070829
  Receipt Date: 20070817
  Transmission Date: 20080115
  Serious: Yes (Other)
  Sender: FDA-Public Use
  Company Number: US-1163886

PATIENT
  Sex: Female

DRUGS (1)
  1. SYSTANE EYE DROPS [Suspect]
     Dosage: OPHTHALMIC
     Route: 047
     Dates: start: 20070501, end: 20070801

REACTIONS (6)
  - EYE IRRITATION [None]
  - EYE PAIN [None]
  - OCULAR HYPERAEMIA [None]
  - PHOTOPSIA [None]
  - RETINAL DETACHMENT [None]
  - VITREOUS FLOATERS [None]
